FAERS Safety Report 11614331 (Version 1)
Quarter: 2015Q4

REPORT INFORMATION
  Report Type: Spontaneous
  Country: US (occurrence: US)
  Receive Date: 20151009
  Receipt Date: 20151009
  Transmission Date: 20160304
  Serious: Yes (Other)
  Sender: FDA-Public Use
  Company Number: US-ASTRAZENECA-2015SE95701

PATIENT
  Age: 22 Year
  Sex: Male
  Weight: 88.5 kg

DRUGS (3)
  1. QUETIAPINE FUMARATE. [Suspect]
     Active Substance: QUETIAPINE FUMARATE
     Indication: BIPOLAR DISORDER
     Dosage: GENERIC
     Route: 048
  2. LAMOTRIGINE. [Concomitant]
     Active Substance: LAMOTRIGINE
     Indication: BIPOLAR DISORDER
     Route: 065
     Dates: start: 201507
  3. QUETIAPINE FUMARATE. [Suspect]
     Active Substance: QUETIAPINE FUMARATE
     Indication: BIPOLAR DISORDER
     Route: 048
     Dates: start: 2015, end: 201508

REACTIONS (3)
  - Tardive dyskinesia [Unknown]
  - Tongue movement disturbance [Unknown]
  - Bruxism [Unknown]

NARRATIVE: CASE EVENT DATE: 2015
